FAERS Safety Report 14554654 (Version 1)
Quarter: 2018Q1

REPORT INFORMATION
  Report Type: Spontaneous
  Country: US (occurrence: US)
  Receive Date: 20180218
  Receipt Date: 20180218
  Transmission Date: 20180509
  Serious: Yes (Other)
  Sender: FDA-Public Use
  Company Number: None

PATIENT
  Age: 6 Year
  Sex: Male
  Weight: 23.85 kg

DRUGS (1)
  1. RID LICE TREATMENT COMPLETE KIT [Suspect]
     Active Substance: PIPERONYL BUTOXIDE\PYRETHRUM EXTRACT
     Indication: LICE INFESTATION
     Dosage: ?          QUANTITY:1 PACKAGE;?
     Route: 061

REACTIONS (5)
  - Urticaria [None]
  - Lip swelling [None]
  - Drug ineffective [None]
  - Product formulation issue [None]
  - Drug resistance [None]

NARRATIVE: CASE EVENT DATE: 20180217
